FAERS Safety Report 24950215 (Version 2)
Quarter: 2025Q1

REPORT INFORMATION
  Report Type: Spontaneous
  Country: US (occurrence: US)
  Receive Date: 20250210
  Receipt Date: 20250228
  Transmission Date: 20250409
  Serious: No
  Sender: BAYER HEALTHCARE PHARMACEUTICALS INC.
  Company Number: US-BAYER-2025A015756

PATIENT
  Age: 71 Year
  Sex: Female
  Weight: 63.492 kg

DRUGS (13)
  1. EOVIST [Suspect]
     Active Substance: GADOXETATE DISODIUM
     Indication: Magnetic resonance imaging hepatobiliary
     Route: 042
     Dates: start: 20250131, end: 20250131
  2. EOVIST [Suspect]
     Active Substance: GADOXETATE DISODIUM
     Indication: Endoscopic retrograde cholangiopancreatography
  3. ZENPEP [Concomitant]
     Active Substance: PANCRELIPASE AMYLASE\PANCRELIPASE LIPASE\PANCRELIPASE PROTEASE
  4. BIOTIN [Concomitant]
     Active Substance: BIOTIN
  5. QUERCETIN [Concomitant]
     Active Substance: QUERCETIN
  6. Proomega [Concomitant]
  7. MINERALS\VITAMINS [Concomitant]
     Active Substance: MINERALS\VITAMINS
  8. Primadophilus junior [Concomitant]
  9. Vitamin D3 K2 [Concomitant]
  10. CHOLINE [Concomitant]
     Active Substance: CHOLINE
  11. NAC [Concomitant]
  12. Complex carlex [Concomitant]
  13. COLLAGEN [Concomitant]
     Active Substance: COLLAGEN

REACTIONS (6)
  - Palatal swelling [Recovered/Resolved]
  - Lip swelling [Recovered/Resolved]
  - Throat irritation [Recovered/Resolved]
  - Lip pruritus [Recovered/Resolved]
  - Pharyngeal swelling [Recovered/Resolved]
  - Headache [None]

NARRATIVE: CASE EVENT DATE: 20250131
